FAERS Safety Report 5576843-8 (Version None)
Quarter: 2007Q4

REPORT INFORMATION
  Report Type: 
  Country: None (occurrence: None)
  Receive Date: 20071130
  Receipt Date: 20070921
  Transmission Date: 20080405
  Serious: No
  Sender: FDA-Public Use
  Company Number: US200709005343

PATIENT

DRUGS (1)
  1. BYETTA [Suspect]
     Indication: DRUG USE FOR UNKNOWN INDICATION

REACTIONS (3)
  - BLOOD GLUCOSE ABNORMAL [None]
  - NAUSEA [None]
  - VOMITING [None]
